FAERS Safety Report 6457300-3 (Version None)
Quarter: 2009Q4

REPORT INFORMATION
  Report Type: 
  Country: None (occurrence: None)
  Receive Date: 20091125
  Receipt Date: 20091117
  Transmission Date: 20100525
  Serious: Yes (Other)
  Sender: FDA-Public Use
  Company Number: CA-PFIZER INC-2009299278

PATIENT
  Age: 51 Year
  Sex: Female

DRUGS (11)
  1. CHAMPIX [Suspect]
     Dosage: UNK
     Dates: start: 20090901
  2. TOPAMAX [Concomitant]
  3. REMERON [Concomitant]
  4. COTAZYM [Concomitant]
  5. IRON [Concomitant]
  6. CALCIUM FOLINATE [Concomitant]
  7. VITAMIN B COMPLEX CAP [Concomitant]
  8. PREVACID [Concomitant]
  9. RIVOTRIL [Concomitant]
  10. ESTROGEN NOS [Concomitant]
  11. AMERGE [Concomitant]

REACTIONS (1)
  - BIPOLAR DISORDER [None]
